FAERS Safety Report 21357688 (Version 2)
Quarter: 2022Q3

REPORT INFORMATION
  Report Type: Spontaneous
  Country: DE (occurrence: DE)
  Receive Date: 20220921
  Receipt Date: 20220923
  Transmission Date: 20221027
  Serious: Yes (Life-Threatening, Hospitalization, Other)
  Sender: FDA-Public Use
  Company Number: DE-ADRED-08207-01

PATIENT
  Age: 66 Year
  Sex: Female
  Weight: 60 kg

DRUGS (3)
  1. HYDROXYUREA [Suspect]
     Active Substance: HYDROXYUREA
     Indication: Product used for unknown indication
     Dosage: 500 MG, 1-0-0-0, KAPSELN
     Route: 048
  2. Potassium iodide/Levothyroxine sodium [Concomitant]
     Indication: Product used for unknown indication
     Dosage: 0.196|0.1 MG, 1-0-0-0,
     Route: 048
  3. ALENDRONIC ACID [Concomitant]
     Active Substance: ALENDRONIC ACID
     Indication: Product used for unknown indication
     Dosage: 70 MG, ACCORDING TO SCHEME, EFFERVESCENT TABLETS
     Route: 048

REACTIONS (7)
  - General physical health deterioration [Unknown]
  - Vomiting [Unknown]
  - Renal haemorrhage [Unknown]
  - Thrombocytopenia [Unknown]
  - Headache [Unknown]
  - Pain [Unknown]
  - Dysuria [Unknown]
